FAERS Safety Report 10593703 (Version 1)
Quarter: 2014Q4

REPORT INFORMATION
  Report Type: Spontaneous
  Country: AR (occurrence: AR)
  Receive Date: 20141119
  Receipt Date: 20141119
  Transmission Date: 20150529
  Serious: Yes (Other)
  Sender: FDA-Public Use
  Company Number: PHHY2014AR151111

PATIENT
  Sex: Male

DRUGS (1)
  1. DIOVAN [Suspect]
     Active Substance: VALSARTAN
     Indication: HYPERTENSION
     Dosage: 320 MG, QD
     Route: 065

REACTIONS (5)
  - Hypertension [Recovered/Resolved]
  - Cardiac disorder [Recovered/Resolved]
  - Cerebrovascular accident [Recovered/Resolved]
  - Drug prescribing error [Recovered/Resolved]
  - Wrong technique in drug usage process [Recovered/Resolved]
